FAERS Safety Report 18334996 (Version 4)
Quarter: 2020Q4

REPORT INFORMATION
  Report Type: Report from Study
  Country: US (occurrence: US)
  Receive Date: 20201001
  Receipt Date: 20201105
  Transmission Date: 20210113
  Serious: Yes (Hospitalization)
  Sender: FDA-Public Use
  Company Number: US-PFIZER INC-2020373981

PATIENT
  Age: 35 Year
  Sex: Female
  Weight: 66.21 kg

DRUGS (10)
  1. BLINDED BNT162B1 [Suspect]
     Active Substance: INVESTIGATIONAL PRODUCT
     Indication: IMMUNISATION
     Dosage: SINGLE DOSE
     Route: 030
     Dates: start: 20200831, end: 20200831
  2. BLINDED BNT162C2 [Suspect]
     Active Substance: INVESTIGATIONAL PRODUCT
     Indication: IMMUNISATION
     Dosage: SINGLE DOSE
     Route: 030
     Dates: start: 20200831, end: 20200831
  3. BLINDED BNT162A1 [Suspect]
     Active Substance: INVESTIGATIONAL PRODUCT
     Indication: IMMUNISATION
     Dosage: SINGLE DOSE
     Route: 030
     Dates: start: 20200831, end: 20200831
  4. BLINDED BNT162B2 [Suspect]
     Active Substance: INVESTIGATIONAL PRODUCT
     Indication: IMMUNISATION
     Dosage: SINGLE DOSE
     Route: 030
     Dates: start: 20200831, end: 20200831
  5. BUPROPION. [Concomitant]
     Active Substance: BUPROPION
     Indication: DEPRESSION
     Dosage: UNK
     Dates: start: 2016
  6. PLACEBO [Suspect]
     Active Substance: UNSPECIFIED INGREDIENT
     Indication: IMMUNISATION
     Dosage: SINGLE DOSE
     Route: 030
     Dates: start: 20200831, end: 20200831
  7. MEDROL [Suspect]
     Active Substance: METHYLPREDNISOLONE
     Indication: MUSCLE SPASMS
     Dosage: 4 MG, DAILY, DOSE PACK
     Route: 048
     Dates: start: 20200919, end: 20200924
  8. LEVOTHYROXINE. [Concomitant]
     Active Substance: LEVOTHYROXINE
     Indication: HYPOTHYROIDISM
     Dosage: UNK
     Dates: start: 2017
  9. CLARITIN [Concomitant]
     Active Substance: LORATADINE
     Indication: SEASONAL ALLERGY
     Dosage: UNK
     Dates: start: 2018
  10. CYCLOBENZAPRINE. [Suspect]
     Active Substance: CYCLOBENZAPRINE
     Indication: MUSCLE SPASMS
     Dosage: 10 MG, DAILY
     Route: 048
     Dates: start: 20200919, end: 20200924

REACTIONS (1)
  - Paraesthesia [Recovered/Resolved]

NARRATIVE: CASE EVENT DATE: 20200921
